FAERS Safety Report 5084987-2 (Version None)
Quarter: 2006Q3

REPORT INFORMATION
  Report Type: 
  Country: None (occurrence: None)
  Receive Date: 20060815
  Receipt Date: 20060731
  Transmission Date: 20061208
  Serious: Yes (Hospitalization, Other)
  Sender: FDA-Public Use
  Company Number: US-2006-014623

PATIENT
  Age: 60 Year
  Sex: Male
  Weight: 104.8 kg

DRUGS (7)
  1. BETASERON [Suspect]
     Indication: PROGRESSIVE MULTIPLE SCLEROSIS
     Dosage: SEE IMAGE
     Route: 058
     Dates: start: 20040820, end: 20060602
  2. BETASERON [Suspect]
     Indication: PROGRESSIVE MULTIPLE SCLEROSIS
     Dosage: SEE IMAGE
     Route: 058
     Dates: start: 20060701
  3. SULINDAC [Suspect]
     Dates: start: 20060501
  4. LISINOPRIL [Concomitant]
  5. BACLOFEN [Concomitant]
  6. WELLBUTRIN SR [Concomitant]
  7. NORVASC [Concomitant]

REACTIONS (28)
  - AUTOIMMUNE THROMBOCYTOPENIA [None]
  - BLOOD DISORDER [None]
  - BLOOD GLUCOSE INCREASED [None]
  - BODY TEMPERATURE DECREASED [None]
  - CONTUSION [None]
  - DEEP VEIN THROMBOSIS [None]
  - DEHYDRATION [None]
  - DEPRESSION [None]
  - ERECTILE DYSFUNCTION [None]
  - EXTENSOR PLANTAR RESPONSE [None]
  - FLUID INTAKE REDUCED [None]
  - HAEMOGLOBIN DECREASED [None]
  - HEADACHE [None]
  - HELICOBACTER PYLORI IDENTIFICATION TEST POSITIVE [None]
  - HYPERREFLEXIA [None]
  - IDIOPATHIC THROMBOCYTOPENIC PURPURA [None]
  - INFLUENZA LIKE ILLNESS [None]
  - INFUSION SITE BRUISING [None]
  - INJECTION SITE REACTION [None]
  - MUSCLE ATROPHY [None]
  - MUSCULOSKELETAL DISORDER [None]
  - OEDEMA PERIPHERAL [None]
  - PLATELET COUNT DECREASED [None]
  - SENSORY LOSS [None]
  - SPEECH DISORDER [None]
  - SUBARACHNOID HAEMORRHAGE [None]
  - SUBDURAL HAEMATOMA [None]
  - WHITE BLOOD CELL COUNT INCREASED [None]
